FAERS Safety Report 19511829 (Version 1)
Quarter: 2021Q3

REPORT INFORMATION
  Report Type: Spontaneous
  Country: US (occurrence: US)
  Receive Date: 20210709
  Receipt Date: 20210709
  Transmission Date: 20211014
  Serious: Yes (Other)
  Sender: FDA-Public Use
  Company Number: US-SA-2021SA222265

PATIENT
  Age: 78 Year
  Sex: Male
  Weight: 53.52 kg

DRUGS (1)
  1. ZANTAC [Suspect]
     Active Substance: RANITIDINE HYDROCHLORIDE
     Indication: GASTRIC PH DECREASED
     Dosage: UNK
     Dates: start: 198306, end: 201801

REACTIONS (2)
  - Oesophageal carcinoma [Unknown]
  - Nasopharyngeal cancer [Unknown]

NARRATIVE: CASE EVENT DATE: 20171201
